FAERS Safety Report 8885278 (Version 1)
Quarter: 2012Q4

REPORT INFORMATION
  Report Type: 
  Country: DE (occurrence: DK)
  Receive Date: 20121102
  Receipt Date: 20121102
  Transmission Date: 20130627
  Serious: Yes (Life-Threatening, Other)
  Sender: FDA-Public Use
  Company Number: DK-GENZYME-CAMP-1002498

PATIENT
  Age: 62 Year
  Sex: Male

DRUGS (7)
  1. CAMPATH [Suspect]
     Indication: T-CELL LYMPHOMA
     Dosage: 30 mg, qd
     Route: 058
     Dates: start: 20121017, end: 20121017
  2. CYCLOPHOSPHAMIDE [Suspect]
     Indication: T-CELL LYMPHOMA
     Dosage: UNK
     Route: 042
     Dates: start: 20121017, end: 20121017
  3. DOXORUBICINE [Suspect]
     Indication: T-CELL LYMPHOMA
     Dosage: UNK
     Route: 042
     Dates: start: 20121017, end: 20121017
  4. VINCRISTINE [Suspect]
     Indication: T-CELL LYMPHOMA
     Dosage: 2 mg, qd
     Route: 042
     Dates: start: 20121017, end: 20121017
  5. PREDNISONE [Suspect]
     Indication: T-CELL LYMPHOMA
     Dosage: 100 mg, qd
     Route: 048
     Dates: start: 20121017, end: 20121017
  6. PEGFILGRASTIM [Suspect]
     Indication: T-CELL LYMPHOMA
     Dosage: 6 mg, qd
     Route: 058
     Dates: start: 20121017, end: 20121017
  7. FILGRASTIM [Concomitant]
     Indication: NEUTROPENIA
     Dosage: UNK
     Route: 065
     Dates: start: 20121024

REACTIONS (9)
  - White blood cell count decreased [Unknown]
  - Abdominal adhesions [Unknown]
  - Abdominal operation [Recovered/Resolved]
  - Skin lesion [Not Recovered/Not Resolved]
  - Unevaluable event [Not Recovered/Not Resolved]
  - Surgical skin tear [Not Recovered/Not Resolved]
  - Haemoglobin decreased [Unknown]
  - Sepsis [Unknown]
  - Weight decreased [Unknown]
